FAERS Safety Report 4991195-X (Version None)
Quarter: 2006Q2

REPORT INFORMATION
  Report Type: 
  Country: None (occurrence: None)
  Receive Date: 20060426
  Receipt Date: 20060419
  Transmission Date: 20061013
  Serious: Yes (Other)
  Sender: FDA-Public Use
  Company Number: GRWYE562219APR06

PATIENT
  Age: 65 Year
  Sex: Female

DRUGS (2)
  1. EFFEXOR XR [Suspect]
     Indication: DEPRESSION
     Dosage: 75 MG 1X PER 1 DAY ORAL
     Route: 048
     Dates: start: 20060301, end: 20060301
  2. XANAX [Concomitant]

REACTIONS (3)
  - DYSARTHRIA [None]
  - DYSPNOEA [None]
  - HYPOAESTHESIA [None]
